FAERS Safety Report 6096311-7 (Version None)
Quarter: 2009Q1

REPORT INFORMATION
  Report Type: 
  Country: None (occurrence: None)
  Receive Date: 20090227
  Receipt Date: 20081111
  Transmission Date: 20090719
  Serious: No
  Sender: FDA-Public Use
  Company Number: A0755799A

PATIENT
  Age: 20 Year
  Sex: Male

DRUGS (6)
  1. LAMICTAL [Suspect]
     Indication: EPILEPSY
     Dosage: 150MG PER DAY
     Route: 048
     Dates: start: 20080701
  2. ARICEPT [Concomitant]
  3. CORTEF [Concomitant]
  4. THYROXINE [Concomitant]
  5. TESTOSTERONE [Concomitant]
  6. ZOLOFT [Concomitant]

REACTIONS (1)
  - VISION BLURRED [None]
